FAERS Safety Report 24204306 (Version 1)
Quarter: 2024Q3

REPORT INFORMATION
  Report Type: Spontaneous
  Country: CN (occurrence: CN)
  Receive Date: 20240813
  Receipt Date: 20240813
  Transmission Date: 20241017
  Serious: Yes (Death)
  Sender: NOVITIUM PHARMA
  Company Number: CN-NOVITIUMPHARMA-2024CNNVP01569

PATIENT
  Age: 34 Year
  Sex: Female

DRUGS (5)
  1. PREDNISONE [Suspect]
     Active Substance: PREDNISONE
     Indication: Acute lymphocytic leukaemia
  2. VINCRISTINE [Concomitant]
     Active Substance: VINCRISTINE
     Indication: Acute lymphocytic leukaemia
  3. IDARUBICIN [Concomitant]
     Active Substance: IDARUBICIN
     Indication: Acute lymphocytic leukaemia
  4. CYCLOPHOSPHAMIDE [Concomitant]
     Active Substance: CYCLOPHOSPHAMIDE
     Indication: Acute lymphocytic leukaemia
  5. PEGASPARGASE [Concomitant]
     Active Substance: PEGASPARGASE
     Indication: Acute lymphocytic leukaemia

REACTIONS (1)
  - Drug ineffective [Fatal]
